FAERS Safety Report 20279679 (Version 1)
Quarter: 2021Q4

REPORT INFORMATION
  Report Type: Spontaneous
  Country: US (occurrence: None)
  Receive Date: 20211230
  Receipt Date: 20211230
  Transmission Date: 20220304
  Serious: No
  Sender: FDA-Public Use
  Company Number: None

PATIENT
  Age: 61 Year
  Sex: Female

DRUGS (2)
  1. PIQRAY [Suspect]
     Active Substance: ALPELISIB
     Indication: Breast cancer
     Dates: start: 20211108, end: 20211217
  2. PIQRAY [Suspect]
     Active Substance: ALPELISIB
     Dosage: FREQUENCY : DAILY;?
     Route: 048
     Dates: start: 20211108, end: 20211217

REACTIONS (1)
  - Malignant neoplasm progression [None]

NARRATIVE: CASE EVENT DATE: 20211217
